FAERS Safety Report 7211052-8 (Version None)
Quarter: 2011Q1

REPORT INFORMATION
  Report Type: 
  Country: None (occurrence: None)
  Receive Date: 20110105
  Receipt Date: 20100722
  Transmission Date: 20110831
  Serious: No
  Sender: FDA-Public Use
  Company Number: US-ABBOTT-10P-163-0660048-00

PATIENT
  Sex: Female

DRUGS (1)
  1. TRICOR [Suspect]
     Indication: PRODUCT USED FOR UNKNOWN INDICATION
     Dates: start: 20000101, end: 20010101

REACTIONS (5)
  - ANXIETY [None]
  - FATIGUE [None]
  - CONFUSIONAL STATE [None]
  - MUSCLE SPASMS [None]
  - DYSPEPSIA [None]
